FAERS Safety Report 17105406 (Version 1)
Quarter: 2019Q4

REPORT INFORMATION
  Report Type: Spontaneous
  Country: SE (occurrence: SE)
  Receive Date: 20191203
  Receipt Date: 20191203
  Transmission Date: 20200122
  Serious: Yes (Hospitalization)
  Sender: FDA-Public Use
  Company Number: SE-TEVA-2019-SE-1144796

PATIENT
  Age: 32 Year
  Sex: Female

DRUGS (6)
  1. LITHIUM. [Suspect]
     Active Substance: LITHIUM
     Dosage: 84 MG
     Route: 048
     Dates: start: 20180610, end: 20180610
  2. ATARAX [Suspect]
     Active Substance: HYDROXYZINE HYDROCHLORIDE
     Dosage: 150 MG
     Route: 048
     Dates: start: 20180610, end: 20180610
  3. LAMOTRIGINE. [Suspect]
     Active Substance: LAMOTRIGINE
     Dosage: 150 MG
     Route: 048
     Dates: start: 20180610, end: 20180610
  4. LERGIGAN (PROMETHAZINE HYDROCHLORIDE) [Suspect]
     Active Substance: PROMETHAZINE HYDROCHLORIDE
     Dosage: 250 MG
     Route: 048
     Dates: start: 20180610, end: 20180610
  5. MELATONIN [Suspect]
     Active Substance: MELATONIN
     Dosage: 30 MG
     Route: 048
     Dates: start: 20180610, end: 20180610
  6. PROPAVAN [Suspect]
     Active Substance: PROPIOMAZINE
     Dosage: 375 MG
     Route: 048
     Dates: start: 20180610, end: 20180610

REACTIONS (2)
  - Intentional self-injury [Unknown]
  - Intentional overdose [Unknown]

NARRATIVE: CASE EVENT DATE: 20180610
